FAERS Safety Report 6878201-2 (Version None)
Quarter: 2010Q3

REPORT INFORMATION
  Report Type: 
  Country: None (occurrence: None)
  Receive Date: 20100728
  Receipt Date: 20100716
  Transmission Date: 20110219
  Serious: Yes (Other)
  Sender: FDA-Public Use
  Company Number: JP-PFIZER INC-2010079899

PATIENT
  Age: 9 Year
  Sex: Female
  Weight: 34 kg

DRUGS (11)
  1. GENOTROPIN [Suspect]
     Indication: RENAL FAILURE CHRONIC
     Dosage: 1.0 MG, 1X/DAY
     Route: 058
     Dates: start: 20090710, end: 20100318
  2. GENOTROPIN [Suspect]
     Dosage: 2.0 MG, 1X/DAY
     Route: 058
     Dates: start: 20100319, end: 20100527
  3. GENOTROPIN [Suspect]
     Dosage: 1.0 MG, 1X/DAY
     Route: 058
     Dates: start: 20100528
  4. PREDONINE [Suspect]
     Indication: DERMATITIS ATOPIC
     Dosage: 2.5 MG, 1X/DAY
     Route: 048
     Dates: start: 20080701
  5. LONGES [Concomitant]
     Indication: HYPERTENSION
     Dosage: 10 MG, 1X/DAY
     Route: 048
     Dates: start: 20100116
  6. CALCIUM CARBONATE [Concomitant]
     Indication: RENAL OSTEODYSTROPHY
     Dosage: 3000 MG, UNK
     Route: 048
     Dates: start: 20080701
  7. ROCALTROL [Concomitant]
     Indication: RENAL OSTEODYSTROPHY
     Dosage: 0.5 MG, UNK
     Route: 048
  8. ROCALTROL [Concomitant]
     Dosage: 0.25 MG, 1X/DAY
     Route: 048
     Dates: start: 20080701
  9. SENNOSIDES [Concomitant]
     Indication: CONSTIPATION
     Dosage: 12 MG, 1X/DAY
     Route: 048
     Dates: start: 20080701
  10. CANDESARTAN CILEXETIL [Concomitant]
     Indication: HYPERTENSION
     Dosage: 8 MG, 1X/DAY
     Route: 048
     Dates: start: 20100116
  11. NORVASC [Concomitant]
     Indication: HYPERTENSION
     Dosage: 5 MG, 1X/DAY
     Route: 048
     Dates: start: 20080822

REACTIONS (1)
  - HYPERTENSION [None]
